FAERS Safety Report 21339903 (Version 2)
Quarter: 2022Q4

REPORT INFORMATION
  Report Type: Report from Study
  Country: JP (occurrence: JP)
  Receive Date: 20220915
  Receipt Date: 20221026
  Transmission Date: 20230112
  Serious: Yes (Hospitalization, Other)
  Sender: FDA-Public Use
  Company Number: JP-NOVARTISPH-NVSJ2021JP017728

PATIENT
  Age: 8 Year
  Sex: Female
  Weight: 30 kg

DRUGS (38)
  1. ILARIS [Suspect]
     Active Substance: CANAKINUMAB
     Indication: Still^s disease
     Dosage: 128 MG
     Route: 058
     Dates: start: 20200907
  2. ILARIS [Suspect]
     Active Substance: CANAKINUMAB
     Dosage: 128 MG
     Route: 058
     Dates: start: 20201006
  3. ILARIS [Suspect]
     Active Substance: CANAKINUMAB
     Dosage: 128 MG
     Route: 058
     Dates: start: 20201104
  4. ILARIS [Suspect]
     Active Substance: CANAKINUMAB
     Dosage: 128 MG
     Route: 058
     Dates: start: 20201202
  5. ILARIS [Suspect]
     Active Substance: CANAKINUMAB
     Dosage: 128 MG
     Route: 058
     Dates: start: 20210106
  6. ILARIS [Suspect]
     Active Substance: CANAKINUMAB
     Dosage: 120 MG
     Route: 058
     Dates: start: 20210203
  7. ILARIS [Suspect]
     Active Substance: CANAKINUMAB
     Dosage: 120 MG
     Route: 058
     Dates: start: 20210308
  8. ILARIS [Suspect]
     Active Substance: CANAKINUMAB
     Dosage: 120 MG
     Route: 058
     Dates: start: 20210405
  9. ILARIS [Suspect]
     Active Substance: CANAKINUMAB
     Dosage: 120 MG
     Route: 058
     Dates: start: 20210510
  10. ILARIS [Suspect]
     Active Substance: CANAKINUMAB
     Dosage: 120 MG
     Route: 058
     Dates: start: 20210607
  11. ILARIS [Suspect]
     Active Substance: CANAKINUMAB
     Dosage: 120 MG
     Route: 058
     Dates: start: 20210708
  12. ILARIS [Suspect]
     Active Substance: CANAKINUMAB
     Dosage: 115 MG
     Route: 058
     Dates: start: 20210802
  13. ILARIS [Suspect]
     Active Substance: CANAKINUMAB
     Dosage: 115 MG
     Route: 058
     Dates: start: 20210902
  14. ILARIS [Suspect]
     Active Substance: CANAKINUMAB
     Dosage: 115 MG
     Route: 058
     Dates: start: 20211002
  15. ILARIS [Suspect]
     Active Substance: CANAKINUMAB
     Dosage: 115 MG
     Route: 058
     Dates: start: 20211104
  16. ILARIS [Suspect]
     Active Substance: CANAKINUMAB
     Dosage: 120 MG
     Route: 058
     Dates: start: 20211209
  17. ILARIS [Suspect]
     Active Substance: CANAKINUMAB
     Dosage: 120 MG
     Route: 058
     Dates: start: 20220106
  18. ILARIS [Suspect]
     Active Substance: CANAKINUMAB
     Dosage: 120 MG
     Route: 058
     Dates: start: 20220203
  19. ILARIS [Suspect]
     Active Substance: CANAKINUMAB
     Dosage: 120 MG
     Route: 058
     Dates: start: 20220303
  20. ILARIS [Suspect]
     Active Substance: CANAKINUMAB
     Dosage: 120 MG
     Route: 058
     Dates: start: 20220407
  21. ILARIS [Suspect]
     Active Substance: CANAKINUMAB
     Dosage: 120 MG
     Route: 058
     Dates: start: 20220512
  22. ILARIS [Suspect]
     Active Substance: CANAKINUMAB
     Dosage: 120 MG
     Route: 058
     Dates: start: 20220609
  23. ILARIS [Suspect]
     Active Substance: CANAKINUMAB
     Dosage: 120 MG
     Route: 058
     Dates: start: 20220707
  24. ILARIS [Suspect]
     Active Substance: CANAKINUMAB
     Dosage: 120 MG
     Route: 058
     Dates: start: 20220804
  25. PREDNISOLONE [Concomitant]
     Active Substance: PREDNISOLONE
     Indication: Still^s disease
     Dosage: 9 MG
     Route: 048
     Dates: start: 20200907, end: 20200921
  26. PREDNISOLONE [Concomitant]
     Active Substance: PREDNISOLONE
     Dosage: 8 MG
     Route: 048
     Dates: start: 20200922, end: 20201005
  27. PREDNISOLONE [Concomitant]
     Active Substance: PREDNISOLONE
     Dosage: 7 MG
     Route: 048
     Dates: start: 20201006, end: 20201104
  28. PREDNISOLONE [Concomitant]
     Active Substance: PREDNISOLONE
     Dosage: 6 MG
     Route: 048
     Dates: start: 20201105, end: 20201204
  29. PREDNISOLONE [Concomitant]
     Active Substance: PREDNISOLONE
     Dosage: 4 MG
     Route: 048
     Dates: start: 20210107, end: 20210203
  30. PREDNISOLONE [Concomitant]
     Active Substance: PREDNISOLONE
     Dosage: 3.5 MG
     Route: 048
     Dates: start: 20210204
  31. PREDNISOLONE [Concomitant]
     Active Substance: PREDNISOLONE
     Dosage: 3 MG
     Route: 048
     Dates: start: 20210308, end: 20210404
  32. PREDNISOLONE [Concomitant]
     Active Substance: PREDNISOLONE
     Dosage: 2.5 MG
     Route: 048
     Dates: start: 20210405, end: 20210707
  33. PREDNISOLONE [Concomitant]
     Active Substance: PREDNISOLONE
     Dosage: 2 MG
     Route: 048
     Dates: start: 20210708, end: 20211103
  34. PREDONINE [Concomitant]
     Active Substance: PREDNISOLONE
     Indication: Still^s disease
     Dosage: 1.5 MG
     Route: 048
     Dates: start: 20211104, end: 20220608
  35. PREDONINE [Concomitant]
     Active Substance: PREDNISOLONE
     Dosage: 1.0 MG
     Route: 048
     Dates: start: 20220609, end: 20220831
  36. FAMOTIDINE [Concomitant]
     Active Substance: FAMOTIDINE
     Indication: Product used for unknown indication
     Dosage: 10 MG
     Route: 048
     Dates: start: 20191221
  37. FAMOTIDINE [Concomitant]
     Active Substance: FAMOTIDINE
     Dosage: 10 MG
     Route: 048
     Dates: start: 20210308
  38. AMLODIPINE [Concomitant]
     Active Substance: AMLODIPINE BESYLATE
     Indication: Product used for unknown indication
     Dosage: 5 MG
     Route: 048
     Dates: start: 20200120, end: 20201103

REACTIONS (2)
  - Humerus fracture [Recovering/Resolving]
  - Haemophagocytic lymphohistiocytosis [Recovered/Resolved]

NARRATIVE: CASE EVENT DATE: 20210611
